FAERS Safety Report 23969550 (Version 2)
Quarter: 2024Q3

REPORT INFORMATION
  Report Type: Other
  Country: US (occurrence: US)
  Receive Date: 20240613
  Receipt Date: 20240701
  Transmission Date: 20241017
  Serious: No
  Sender: APOTEX
  Company Number: US-APOTEX-2024AP006944

PATIENT
  Sex: Female

DRUGS (1)
  1. FLUTICASONE PROPIONATE [Suspect]
     Active Substance: FLUTICASONE PROPIONATE
     Indication: Rhinorrhoea
     Dosage: UNK
     Route: 065

REACTIONS (5)
  - Infection [Not Recovered/Not Resolved]
  - Recalled product [Unknown]
  - Recalled product administered [Unknown]
  - Rash [Not Recovered/Not Resolved]
  - Epistaxis [Unknown]
